FAERS Safety Report 10528023 (Version 2)
Quarter: 2014Q4

REPORT INFORMATION
  Report Type: Report from Study
  Country: US (occurrence: US)
  Receive Date: 20141020
  Receipt Date: 20141020
  Transmission Date: 20150528
  Serious: Yes (Other)
  Sender: FDA-Public Use
  Company Number: US-GILEAD-2014-0115923

PATIENT
  Age: 75 Year
  Sex: Male

DRUGS (3)
  1. LEUPROLIDE                         /00726901/ [Concomitant]
     Indication: PROSTATE CANCER
  2. ZYDELIG [Suspect]
     Active Substance: IDELALISIB
     Indication: NON-HODGKIN^S LYMPHOMA UNSPECIFIED HISTOLOGY INDOLENT
     Dosage: 150 MG, UNK
     Route: 048
     Dates: start: 20140917
  3. METAMUCIL [Concomitant]
     Active Substance: PLANTAGO SEED

REACTIONS (11)
  - Oral pain [Unknown]
  - Gastrointestinal motility disorder [Unknown]
  - Pollakiuria [Not Recovered/Not Resolved]
  - Dysphagia [Unknown]
  - Hypophagia [Unknown]
  - Abdominal distension [Unknown]
  - Diarrhoea [Recovered/Resolved]
  - Urinary retention [Unknown]
  - Fatigue [Not Recovered/Not Resolved]
  - Faeces discoloured [Unknown]
  - Haemorrhoids [Unknown]

NARRATIVE: CASE EVENT DATE: 2014
